FAERS Safety Report 8265539-X (Version None)
Quarter: 2012Q2

REPORT INFORMATION
  Report Type: 
  Country: None (occurrence: None)
  Receive Date: 20120406
  Receipt Date: 20120330
  Transmission Date: 20120825
  Serious: Yes (Other)
  Sender: FDA-Public Use
  Company Number: JP-PFIZER INC-2011296685

PATIENT
  Age: 75 Year
  Sex: Female
  Weight: 36.8 kg

DRUGS (13)
  1. DOGMATYL [Concomitant]
     Indication: PROPHYLAXIS
     Dosage: 50 MG, 1X/DAY
     Route: 048
  2. ACETAMINOPHEN [Concomitant]
     Indication: PYREXIA
     Dosage: 200 MG, 3X/DAY
     Route: 048
     Dates: end: 20100904
  3. FAMOTIDINE [Concomitant]
     Indication: PROPHYLAXIS
     Dosage: 20 MG, 1X/DAY
     Route: 048
  4. ZITHROMAX [Interacting]
     Indication: MYCOBACTERIUM AVIUM COMPLEX INFECTION
     Dosage: 500 MG, MONDAY, THUESDAY AND WEDNESDAY
     Route: 048
     Dates: end: 20100920
  5. AVELOX [Concomitant]
     Indication: MYCOBACTERIUM AVIUM COMPLEX INFECTION
     Dosage: 300 MG, 1X/DAY
     Route: 048
     Dates: end: 20101006
  6. ACETAMINOPHEN [Concomitant]
     Dosage: 200 MG, AS NEEDED
     Route: 048
     Dates: start: 20100905
  7. BETAMETHASONE [Concomitant]
     Indication: RASH
     Dosage: UNK
     Route: 061
  8. RIFABUTIN [Suspect]
     Indication: MYCOBACTERIUM AVIUM COMPLEX INFECTION
     Dosage: 150 MG, 1X/DAY
     Route: 048
     Dates: start: 20100902, end: 20110926
  9. ETHAMBUTOL HYDROCHLORIDE [Concomitant]
     Indication: MYCOBACTERIUM AVIUM COMPLEX INFECTION
     Dosage: 500 MG, 1X/DAY
     Route: 048
  10. CYANOCOBALAMIN [Concomitant]
     Indication: PROPHYLAXIS
     Dosage: 3 DF, 3X/DAY
     Route: 048
  11. AVELOX [Concomitant]
     Dosage: 400 MG, 1X/DAY
     Route: 048
     Dates: start: 20101007, end: 20101022
  12. CEFAZOLIN SODIUM [Concomitant]
     Indication: PROPHYLAXIS AGAINST DIARRHOEA
     Dosage: 1 G, 3X/DAY
     Route: 048
  13. ALLEGRA [Concomitant]
     Indication: PRURITUS
     Dosage: 60 MG, 2X/DAY
     Route: 048

REACTIONS (5)
  - PYREXIA [None]
  - DRUG INTERACTION [None]
  - SUBDURAL HAEMATOMA [None]
  - DIARRHOEA [None]
  - CEREBRAL HAEMORRHAGE TRAUMATIC [None]
